FAERS Safety Report 13962851 (Version 2)
Quarter: 2017Q4

REPORT INFORMATION
  Report Type: Spontaneous
  Country: US (occurrence: US)
  Receive Date: 20170913
  Receipt Date: 20171123
  Transmission Date: 20180320
  Serious: Yes (Hospitalization, Other)
  Sender: FDA-Public Use
  Company Number: US-VISTAPHARM, INC.-VER201709-000525

PATIENT
  Age: 79 Year
  Sex: Male

DRUGS (8)
  1. LEVODOPA [Concomitant]
     Active Substance: LEVODOPA
     Dosage: EXTENDED-RELEASE TABLETS
     Route: 048
  2. METOCLOPRAMIDE. [Suspect]
     Active Substance: METOCLOPRAMIDE
     Indication: GASTROINTESTINAL MOTILITY DISORDER
     Route: 042
  3. FUROSEMIDE. [Concomitant]
     Active Substance: FUROSEMIDE
  4. ISOPHANE INSULIN HUMAN (NPH) [Concomitant]
     Indication: TYPE 2 DIABETES MELLITUS
     Dosage: 20 UNITS EVERY MORNING AND 16 UNITS EACH EVENING
     Route: 058
  5. METOCLOPRAMIDE. [Suspect]
     Active Substance: METOCLOPRAMIDE
     Dosage: TWO ADDITIONAL DOSES WERE ADMINISTERED DURING THE NIGHT
  6. CARBIDOPA. [Concomitant]
     Active Substance: CARBIDOPA
     Dosage: EXTENDED-RELEASE TABLET
     Route: 048
  7. LISINOPRIL. [Concomitant]
     Active Substance: LISINOPRIL
  8. POLYETHYLENE GLYCOL [Concomitant]
     Active Substance: POLYETHYLENE GLYCOLS
     Indication: CONSTIPATION

REACTIONS (2)
  - Encephalopathy [Recovered/Resolved]
  - Parkinson^s disease [Recovering/Resolving]
